FAERS Safety Report 14583534 (Version 1)
Quarter: 2018Q1

REPORT INFORMATION
  Report Type: Spontaneous
  Country: US (occurrence: US)
  Receive Date: 20180227
  Receipt Date: 20180227
  Transmission Date: 20180509
  Serious: No
  Sender: FDA-Public Use
  Company Number: None

PATIENT
  Age: 52 Year
  Sex: Female
  Weight: 96.75 kg

DRUGS (3)
  1. HIBICLENS [Suspect]
     Active Substance: CHLORHEXIDINE GLUCONATE
     Indication: PREOPERATIVE CARE
     Dosage: QUANTITY:2 USES;?
     Route: 061
     Dates: start: 20180218, end: 20180219
  2. IBUPROFEN. [Concomitant]
     Active Substance: IBUPROFEN
  3. FLUOXETINE [Concomitant]
     Active Substance: FLUOXETINE HYDROCHLORIDE

REACTIONS (4)
  - Genital pain [None]
  - Pruritus genital [None]
  - Genital swelling [None]
  - Genital burning sensation [None]

NARRATIVE: CASE EVENT DATE: 20180219
